FAERS Safety Report 22057175 (Version 3)
Quarter: 2023Q2

REPORT INFORMATION
  Report Type: Other
  Country: DK (occurrence: DK)
  Receive Date: 20230303
  Receipt Date: 20230505
  Transmission Date: 20230722
  Serious: Yes (Life-Threatening, Hospitalization)
  Sender: FDA-Public Use
  Company Number: DK-TOLMAR, INC.-23DK038322

PATIENT
  Age: 75 Year
  Sex: Male
  Weight: 74.3 kg

DRUGS (5)
  1. ELIGARD [Suspect]
     Active Substance: LEUPROLIDE ACETATE
     Indication: Prostate cancer
     Dosage: 22.5 MILLIGRAM, Q 3 MONTH
     Route: 058
     Dates: start: 20170801
  2. ENZALUTAMIDE [Suspect]
     Active Substance: ENZALUTAMIDE
     Indication: Prostate cancer
     Dosage: UNK, QD
     Route: 048
     Dates: start: 20170801, end: 20230131
  3. PROMETHAZINE [Concomitant]
     Active Substance: PROMETHAZINE HYDROCHLORIDE
     Indication: Insomnia
     Dosage: UNK
     Dates: start: 20171024
  4. ACETAMINOPHEN [Concomitant]
     Active Substance: ACETAMINOPHEN
     Indication: Pain
     Dosage: UNK
     Dates: start: 20130108
  5. CALCIUM [Concomitant]
     Active Substance: CALCIUM
     Indication: Osteoporosis prophylaxis
     Dosage: UNK
     Dates: start: 20170801

REACTIONS (1)
  - Subarachnoid haemorrhage [Recovered/Resolved with Sequelae]

NARRATIVE: CASE EVENT DATE: 20221230
